FAERS Safety Report 16571768 (Version 2)
Quarter: 2019Q3

REPORT INFORMATION
  Report Type: Spontaneous
  Country: US (occurrence: US)
  Receive Date: 20190715
  Receipt Date: 20190813
  Transmission Date: 20191004
  Serious: No
  Sender: FDA-Public Use
  Company Number: US-PFIZER INC-2019297500

PATIENT
  Age: 54 Year
  Sex: Female

DRUGS (1)
  1. XELJANZ [Suspect]
     Active Substance: TOFACITINIB CITRATE
     Dosage: 5 MG, UNK
     Dates: start: 20180606

REACTIONS (4)
  - Blood triglycerides increased [Unknown]
  - Blood glucose increased [Unknown]
  - Blood pressure increased [Unknown]
  - Blood cholesterol increased [Unknown]
